FAERS Safety Report 13906004 (Version 2)
Quarter: 2017Q3

REPORT INFORMATION
  Report Type: Spontaneous
  Country: CA (occurrence: CA)
  Receive Date: 20170825
  Receipt Date: 20170825
  Transmission Date: 20171127
  Serious: Yes (Other)
  Sender: FDA-Public Use
  Company Number: PHHY2017CA122115

PATIENT

DRUGS (2)
  1. VANCOMYCIN [Concomitant]
     Active Substance: VANCOMYCIN
     Indication: CLOSTRIDIUM DIFFICILE COLITIS
     Route: 048
  2. METHOTREXATE. [Suspect]
     Active Substance: METHOTREXATE
     Indication: ACUTE LYMPHOCYTIC LEUKAEMIA
     Route: 041

REACTIONS (9)
  - Toxicity to various agents [Recovered/Resolved]
  - Pneumonia [Recovered/Resolved]
  - Encephalopathy [Recovered/Resolved]
  - Drug clearance decreased [Recovered/Resolved]
  - Bone marrow failure [Recovered/Resolved]
  - Hypertension [Recovered/Resolved]
  - Respiratory failure [Recovered/Resolved]
  - Mucosal inflammation [Recovered/Resolved]
  - Acute kidney injury [Recovered/Resolved]
